FAERS Safety Report 18691990 (Version 2)
Quarter: 2021Q1

REPORT INFORMATION
  Report Type: Spontaneous
  Country: US (occurrence: US)
  Receive Date: 20210102
  Receipt Date: 20210122
  Transmission Date: 20210419
  Serious: No
  Sender: FDA-Public Use
  Company Number: US-UNITED THERAPEUTICS-UNT-2020-020824

PATIENT
  Sex: Female
  Weight: 72.56 kg

DRUGS (5)
  1. REMODULIN [Suspect]
     Active Substance: TREPROSTINIL
     Dosage: UNK, CONTINUING
     Route: 058
  2. AMBRISENTAN [Suspect]
     Active Substance: AMBRISENTAN
     Indication: PRODUCT USED FOR UNKNOWN INDICATION
     Dosage: UNK
     Route: 065
  3. REMODULIN [Suspect]
     Active Substance: TREPROSTINIL
     Indication: PULMONARY ARTERIAL HYPERTENSION
     Dosage: UNK UNK, CONTINUING
     Route: 058
     Dates: start: 20190627
  4. ADEMPAS [Concomitant]
     Active Substance: RIOCIGUAT
     Indication: PRODUCT USED FOR UNKNOWN INDICATION
     Dosage: UNK
     Route: 065
  5. REMODULIN [Suspect]
     Active Substance: TREPROSTINIL
     Dosage: 0.071 ?G/KG, CONTINUING
     Route: 058

REACTIONS (6)
  - Face oedema [Unknown]
  - Periorbital swelling [Unknown]
  - Joint swelling [Unknown]
  - Eye swelling [Unknown]
  - Ocular hyperaemia [Unknown]
  - Generalised oedema [Unknown]

NARRATIVE: CASE EVENT DATE: 2020
